FAERS Safety Report 4853378-9 (Version None)
Quarter: 2005Q4

REPORT INFORMATION
  Report Type: 
  Country: None (occurrence: None)
  Receive Date: 20051214
  Receipt Date: 20050727
  Transmission Date: 20060501
  Serious: Yes (Hospitalization, Disabling, Other)
  Sender: FDA-Public Use
  Company Number: US-MERCK-0507USA04318

PATIENT
  Age: 54 Year
  Sex: Female
  Weight: 66 kg

DRUGS (12)
  1. VIOXX [Suspect]
     Indication: ARTHRITIS
     Route: 048
     Dates: start: 20021117, end: 20040119
  2. VIOXX [Suspect]
     Route: 048
     Dates: start: 20040301
  3. VIOXX [Suspect]
     Indication: PAIN
     Route: 048
     Dates: start: 20021117, end: 20040119
  4. VIOXX [Suspect]
     Route: 048
     Dates: start: 20040301
  5. IMIPRAMINE HYDROCHLORIDE [Concomitant]
     Route: 048
  6. ASPIRIN [Concomitant]
     Route: 065
  7. NEXIUM [Concomitant]
     Route: 048
  8. ALTACE [Concomitant]
     Route: 048
  9. AMBIEN [Concomitant]
     Route: 048
  10. LASIX [Concomitant]
     Route: 048
  11. SPIRONOLACTONE [Concomitant]
     Route: 048
  12. COREG [Concomitant]
     Route: 048

REACTIONS (12)
  - ARTHRALGIA [None]
  - CARDIAC DISORDER [None]
  - CARDIAC FAILURE [None]
  - CONGESTIVE CARDIOMYOPATHY [None]
  - CONSTIPATION [None]
  - DEPRESSION [None]
  - EMBOLIC STROKE [None]
  - EMOTIONAL DISTRESS [None]
  - MYOCARDIAL INFARCTION [None]
  - RESTLESS LEGS SYNDROME [None]
  - SYNCOPE [None]
  - URINARY TRACT INFECTION [None]
